FAERS Safety Report 22585388 (Version 1)
Quarter: 2023Q2

REPORT INFORMATION
  Report Type: Spontaneous
  Country: US (occurrence: US)
  Receive Date: 20230610
  Receipt Date: 20230610
  Transmission Date: 20230721
  Serious: Yes (Other)
  Sender: FDA-Public Use
  Company Number: US-MYLANLABS-2023M1060856

PATIENT
  Age: 52 Year
  Sex: Male

DRUGS (6)
  1. METHOTREXATE [Suspect]
     Active Substance: METHOTREXATE
     Indication: Antineutrophil cytoplasmic antibody negative
     Dosage: UNK, PATIENT DISCONTINUED THE DRUG ON HIS OWN
     Route: 065
  2. METHOTREXATE [Suspect]
     Active Substance: METHOTREXATE
     Indication: Granulomatosis with polyangiitis
  3. PREDNISONE [Suspect]
     Active Substance: PREDNISONE
     Indication: Antineutrophil cytoplasmic antibody negative
     Dosage: 60 MILLIGRAM, QD
     Route: 065
  4. PREDNISONE [Suspect]
     Active Substance: PREDNISONE
     Indication: Granulomatosis with polyangiitis
  5. RITUXIMAB [Concomitant]
     Active Substance: RITUXIMAB
     Indication: Antineutrophil cytoplasmic antibody negative
     Dosage: UNK
     Route: 065
  6. RITUXIMAB [Concomitant]
     Active Substance: RITUXIMAB
     Indication: Granulomatosis with polyangiitis

REACTIONS (3)
  - Drug ineffective [Unknown]
  - Intentional product misuse [Unknown]
  - Off label use [Unknown]
